FAERS Safety Report 5990783-1 (Version None)
Quarter: 2008Q4

REPORT INFORMATION
  Report Type: 
  Country: None (occurrence: None)
  Receive Date: 20081211
  Receipt Date: 20081208
  Transmission Date: 20090506
  Serious: Yes (Hospitalization)
  Sender: FDA-Public Use
  Company Number: US-BIOGENIDEC-2008BI030833

PATIENT
  Age: 48 Year
  Sex: Female

DRUGS (11)
  1. TYSABRI [Suspect]
     Indication: MULTIPLE SCLEROSIS
     Route: 042
     Dates: start: 20070727
  2. PROVIGIL [Concomitant]
     Indication: DRUG USE FOR UNKNOWN INDICATION
  3. ENABLEX [Concomitant]
     Indication: DRUG USE FOR UNKNOWN INDICATION
  4. ENABLEX [Concomitant]
  5. BACLOFEN [Concomitant]
     Indication: DRUG USE FOR UNKNOWN INDICATION
  6. ZOCOR [Concomitant]
     Indication: DRUG USE FOR UNKNOWN INDICATION
  7. PRINIVIL [Concomitant]
     Indication: DRUG USE FOR UNKNOWN INDICATION
  8. METFORMIN HCL [Concomitant]
     Indication: DRUG USE FOR UNKNOWN INDICATION
  9. K-DUR [Concomitant]
     Indication: DRUG USE FOR UNKNOWN INDICATION
  10. DYAZIDE [Concomitant]
     Indication: DRUG USE FOR UNKNOWN INDICATION
  11. PROTONIX [Concomitant]
     Indication: DRUG USE FOR UNKNOWN INDICATION

REACTIONS (3)
  - FALL [None]
  - MULTIPLE SCLEROSIS RELAPSE [None]
  - SPINAL COMPRESSION FRACTURE [None]
